FAERS Safety Report 11809922 (Version 1)
Quarter: 2015Q4

REPORT INFORMATION
  Report Type: Spontaneous
  Country: US (occurrence: None)
  Receive Date: 20151207
  Receipt Date: 20151207
  Transmission Date: 20160305
  Serious: No
  Sender: FDA-Public Use
  Company Number: None

PATIENT

DRUGS (1)
  1. DEXTROAMPHETAMINE. [Suspect]
     Active Substance: DEXTROAMPHETAMINE
     Indication: ATTENTION DEFICIT/HYPERACTIVITY DISORDER
     Dosage: 1.5 PILLS
     Route: 048

REACTIONS (14)
  - Paraesthesia [None]
  - Pain [None]
  - Dehydration [None]
  - Condition aggravated [None]
  - Muscle spasms [None]
  - Asthenia [None]
  - Anxiety [None]
  - Palpitations [None]
  - Tachycardia [None]
  - Fatigue [None]
  - Dizziness [None]
  - Tic [None]
  - Muscle twitching [None]
  - Tremor [None]
